FAERS Safety Report 22160112 (Version 1)
Quarter: 2023Q1

REPORT INFORMATION
  Report Type: Spontaneous
  Country: NL (occurrence: None)
  Receive Date: 20230331
  Receipt Date: 20230331
  Transmission Date: 20230417
  Serious: Yes (Life-Threatening)
  Sender: FDA-Public Use
  Company Number: 2023A074619

PATIENT
  Sex: Male
  Weight: 61 kg

DRUGS (4)
  1. DAPAGLIFLOZIN [Suspect]
     Active Substance: DAPAGLIFLOZIN
     Indication: Type 2 diabetes mellitus
     Dosage: 1DD1
     Dates: start: 20220101, end: 20230320
  2. METOPROLOL [Concomitant]
     Active Substance: METOPROLOL
     Dosage: MODIFIED-RELEASE TABLET, 50 MG (MILLIGRAMS)
  3. TOBRAMYCIN SULFATE [Concomitant]
     Active Substance: TOBRAMYCIN SULFATE
     Dosage: 4DD1OO MG PO AS SDD
  4. PANTOPRAZOLE SODIUM [Concomitant]
     Active Substance: PANTOPRAZOLE SODIUM
     Dosage: PANTOPRAZOLE INJECTION POWDER 40MG

REACTIONS (2)
  - Hyponatraemia [Recovering/Resolving]
  - Diabetic ketoacidosis [Recovering/Resolving]
